FAERS Safety Report 17971319 (Version 3)
Quarter: 2021Q1

REPORT INFORMATION
  Report Type: Report from Study
  Country: US (occurrence: US)
  Receive Date: 20200701
  Receipt Date: 20210111
  Transmission Date: 20210419
  Serious: Yes (Other)
  Sender: FDA-Public Use
  Company Number: NVSC2020US184154

PATIENT
  Sex: Male

DRUGS (4)
  1. AFINITOR [Suspect]
     Active Substance: EVEROLIMUS
     Indication: TUBEROUS SCLEROSIS COMPLEX
     Dosage: 5 MG, QD
     Route: 048
     Dates: start: 20191128
  2. AFINITOR [Suspect]
     Active Substance: EVEROLIMUS
     Dosage: 12 MG, QD
     Route: 048
     Dates: start: 20201202
  3. AFINITOR [Suspect]
     Active Substance: EVEROLIMUS
     Indication: SEIZURE
     Dosage: 10 MG, QD
     Route: 048
     Dates: start: 20191128
  4. SABRIL [Suspect]
     Active Substance: VIGABATRIN
     Indication: PRODUCT USED FOR UNKNOWN INDICATION
     Route: 065

REACTIONS (4)
  - Product dose omission issue [Not Recovered/Not Resolved]
  - Feeding disorder [Not Recovered/Not Resolved]
  - Seizure [Unknown]
  - Blister [Not Recovered/Not Resolved]
